FAERS Safety Report 26198313 (Version 1)
Quarter: 2025Q4

REPORT INFORMATION
  Report Type: Spontaneous
  Country: EU (occurrence: EU)
  Receive Date: 20251224
  Receipt Date: 20251224
  Transmission Date: 20260117
  Serious: Yes (Congenital Anomaly)
  Sender: MYLAN
  Company Number: EU-EMB-M202411049-2

PATIENT
  Sex: Female

DRUGS (72)
  1. LYRICA [Suspect]
     Active Substance: PREGABALIN
     Indication: Anxiety disorder
     Dosage: 300 MILLIGRAM, QD (AT THE ONSET OF PREGNANCY,)
     Route: 064
     Dates: start: 202411
  2. LYRICA [Suspect]
     Active Substance: PREGABALIN
     Dosage: 300 MILLIGRAM, QD (AT THE ONSET OF PREGNANCY,)
     Dates: start: 202411
  3. LYRICA [Suspect]
     Active Substance: PREGABALIN
     Dosage: 300 MILLIGRAM, QD (AT THE ONSET OF PREGNANCY,)
     Dates: start: 202411
  4. LYRICA [Suspect]
     Active Substance: PREGABALIN
     Dosage: 300 MILLIGRAM, QD (AT THE ONSET OF PREGNANCY,)
     Route: 064
     Dates: start: 202411
  5. LYRICA [Suspect]
     Active Substance: PREGABALIN
     Dosage: 300 MILLIGRAM, QD (AT THE ONSET OF PREGNANCY,)
     Route: 064
     Dates: start: 202411
  6. LYRICA [Suspect]
     Active Substance: PREGABALIN
     Dosage: 300 MILLIGRAM, QD (AT THE ONSET OF PREGNANCY,)
     Dates: start: 202411
  7. LYRICA [Suspect]
     Active Substance: PREGABALIN
     Dosage: 300 MILLIGRAM, QD (AT THE ONSET OF PREGNANCY,)
     Dates: start: 202411
  8. LYRICA [Suspect]
     Active Substance: PREGABALIN
     Dosage: 300 MILLIGRAM, QD (AT THE ONSET OF PREGNANCY,)
     Route: 064
     Dates: start: 202411
  9. LYRICA [Suspect]
     Active Substance: PREGABALIN
     Dosage: 150 MILLIGRAM, QD (DOSAGE REDUCED TO 150 MG/D IN THE COURSE OF PREGNANCY  )
     Route: 064
     Dates: end: 202508
  10. LYRICA [Suspect]
     Active Substance: PREGABALIN
     Dosage: 150 MILLIGRAM, QD (DOSAGE REDUCED TO 150 MG/D IN THE COURSE OF PREGNANCY  )
     Route: 064
     Dates: end: 202508
  11. LYRICA [Suspect]
     Active Substance: PREGABALIN
     Dosage: 150 MILLIGRAM, QD (DOSAGE REDUCED TO 150 MG/D IN THE COURSE OF PREGNANCY  )
     Dates: end: 202508
  12. LYRICA [Suspect]
     Active Substance: PREGABALIN
     Dosage: 150 MILLIGRAM, QD (DOSAGE REDUCED TO 150 MG/D IN THE COURSE OF PREGNANCY  )
     Dates: end: 202508
  13. LYRICA [Suspect]
     Active Substance: PREGABALIN
     Dosage: 150 MILLIGRAM, QD (DOSAGE REDUCED TO 150 MG/D IN THE COURSE OF PREGNANCY  )
     Route: 064
     Dates: end: 202508
  14. LYRICA [Suspect]
     Active Substance: PREGABALIN
     Dosage: 150 MILLIGRAM, QD (DOSAGE REDUCED TO 150 MG/D IN THE COURSE OF PREGNANCY  )
     Route: 064
     Dates: end: 202508
  15. LYRICA [Suspect]
     Active Substance: PREGABALIN
     Dosage: 150 MILLIGRAM, QD (DOSAGE REDUCED TO 150 MG/D IN THE COURSE OF PREGNANCY  )
     Dates: end: 202508
  16. LYRICA [Suspect]
     Active Substance: PREGABALIN
     Dosage: 150 MILLIGRAM, QD (DOSAGE REDUCED TO 150 MG/D IN THE COURSE OF PREGNANCY  )
     Dates: end: 202508
  17. METOPROLOL [Suspect]
     Active Substance: METOPROLOL
     Indication: Postural orthostatic tachycardia syndrome
     Dosage: 23.75 MILLIGRAM, QD
     Dates: start: 202502, end: 202508
  18. METOPROLOL [Suspect]
     Active Substance: METOPROLOL
     Dosage: 23.75 MILLIGRAM, QD
     Dates: start: 202502, end: 202508
  19. METOPROLOL [Suspect]
     Active Substance: METOPROLOL
     Dosage: 23.75 MILLIGRAM, QD
     Route: 064
     Dates: start: 202502, end: 202508
  20. METOPROLOL [Suspect]
     Active Substance: METOPROLOL
     Dosage: 23.75 MILLIGRAM, QD
     Route: 064
     Dates: start: 202502, end: 202508
  21. METOPROLOL [Suspect]
     Active Substance: METOPROLOL
     Dosage: 23.75 MILLIGRAM, QD
     Dates: start: 202502, end: 202508
  22. METOPROLOL [Suspect]
     Active Substance: METOPROLOL
     Dosage: 23.75 MILLIGRAM, QD
     Dates: start: 202502, end: 202508
  23. METOPROLOL [Suspect]
     Active Substance: METOPROLOL
     Dosage: 23.75 MILLIGRAM, QD
     Route: 064
     Dates: start: 202502, end: 202508
  24. METOPROLOL [Suspect]
     Active Substance: METOPROLOL
     Dosage: 23.75 MILLIGRAM, QD
     Route: 064
     Dates: start: 202502, end: 202508
  25. METFORMIN [Suspect]
     Active Substance: METFORMIN HYDROCHLORIDE
     Indication: Type 2 diabetes mellitus
     Dosage: 2000 MILLIGRAM, QD (AT THE ONSET OF PREGNANCY)
     Route: 064
     Dates: start: 202411
  26. METFORMIN [Suspect]
     Active Substance: METFORMIN HYDROCHLORIDE
     Dosage: 2000 MILLIGRAM, QD (AT THE ONSET OF PREGNANCY)
     Dates: start: 202411
  27. METFORMIN [Suspect]
     Active Substance: METFORMIN HYDROCHLORIDE
     Dosage: 2000 MILLIGRAM, QD (AT THE ONSET OF PREGNANCY)
     Dates: start: 202411
  28. METFORMIN [Suspect]
     Active Substance: METFORMIN HYDROCHLORIDE
     Dosage: 2000 MILLIGRAM, QD (AT THE ONSET OF PREGNANCY)
     Route: 064
     Dates: start: 202411
  29. METFORMIN [Suspect]
     Active Substance: METFORMIN HYDROCHLORIDE
     Dosage: 2000 MILLIGRAM, QD (AT THE ONSET OF PREGNANCY)
     Route: 064
     Dates: start: 202411
  30. METFORMIN [Suspect]
     Active Substance: METFORMIN HYDROCHLORIDE
     Dosage: 2000 MILLIGRAM, QD (AT THE ONSET OF PREGNANCY)
     Dates: start: 202411
  31. METFORMIN [Suspect]
     Active Substance: METFORMIN HYDROCHLORIDE
     Dosage: 2000 MILLIGRAM, QD (AT THE ONSET OF PREGNANCY)
     Dates: start: 202411
  32. METFORMIN [Suspect]
     Active Substance: METFORMIN HYDROCHLORIDE
     Dosage: 2000 MILLIGRAM, QD (AT THE ONSET OF PREGNANCY)
     Route: 064
     Dates: start: 202411
  33. METFORMIN [Suspect]
     Active Substance: METFORMIN HYDROCHLORIDE
     Dosage: 1000 MILLIGRAM, QD (DOSAGE REDUCED TO 1000 MG/D IN THE COURSE OF PREGNANCY)
     Route: 064
     Dates: end: 202508
  34. METFORMIN [Suspect]
     Active Substance: METFORMIN HYDROCHLORIDE
     Dosage: 1000 MILLIGRAM, QD (DOSAGE REDUCED TO 1000 MG/D IN THE COURSE OF PREGNANCY)
     Route: 064
     Dates: end: 202508
  35. METFORMIN [Suspect]
     Active Substance: METFORMIN HYDROCHLORIDE
     Dosage: 1000 MILLIGRAM, QD (DOSAGE REDUCED TO 1000 MG/D IN THE COURSE OF PREGNANCY)
     Dates: end: 202508
  36. METFORMIN [Suspect]
     Active Substance: METFORMIN HYDROCHLORIDE
     Dosage: 1000 MILLIGRAM, QD (DOSAGE REDUCED TO 1000 MG/D IN THE COURSE OF PREGNANCY)
     Dates: end: 202508
  37. METFORMIN [Suspect]
     Active Substance: METFORMIN HYDROCHLORIDE
     Dosage: 1000 MILLIGRAM, QD (DOSAGE REDUCED TO 1000 MG/D IN THE COURSE OF PREGNANCY)
     Route: 064
     Dates: end: 202508
  38. METFORMIN [Suspect]
     Active Substance: METFORMIN HYDROCHLORIDE
     Dosage: 1000 MILLIGRAM, QD (DOSAGE REDUCED TO 1000 MG/D IN THE COURSE OF PREGNANCY)
     Route: 064
     Dates: end: 202508
  39. METFORMIN [Suspect]
     Active Substance: METFORMIN HYDROCHLORIDE
     Dosage: 1000 MILLIGRAM, QD (DOSAGE REDUCED TO 1000 MG/D IN THE COURSE OF PREGNANCY)
     Dates: end: 202508
  40. METFORMIN [Suspect]
     Active Substance: METFORMIN HYDROCHLORIDE
     Dosage: 1000 MILLIGRAM, QD (DOSAGE REDUCED TO 1000 MG/D IN THE COURSE OF PREGNANCY)
     Dates: end: 202508
  41. DULOXETINE [Suspect]
     Active Substance: DULOXETINE
     Indication: Anxiety disorder
     Dosage: 90 MILLIGRAM, QD (AT THE ONSET OF PREGNANCY)
     Dates: start: 202411
  42. DULOXETINE [Suspect]
     Active Substance: DULOXETINE
     Dosage: 90 MILLIGRAM, QD (AT THE ONSET OF PREGNANCY)
     Dates: start: 202411
  43. DULOXETINE [Suspect]
     Active Substance: DULOXETINE
     Dosage: 90 MILLIGRAM, QD (AT THE ONSET OF PREGNANCY)
     Route: 064
     Dates: start: 202411
  44. DULOXETINE [Suspect]
     Active Substance: DULOXETINE
     Dosage: 90 MILLIGRAM, QD (AT THE ONSET OF PREGNANCY)
     Route: 064
     Dates: start: 202411
  45. DULOXETINE [Suspect]
     Active Substance: DULOXETINE
     Dosage: 90 MILLIGRAM, QD (AT THE ONSET OF PREGNANCY)
     Dates: start: 202411
  46. DULOXETINE [Suspect]
     Active Substance: DULOXETINE
     Dosage: 90 MILLIGRAM, QD (AT THE ONSET OF PREGNANCY)
     Dates: start: 202411
  47. DULOXETINE [Suspect]
     Active Substance: DULOXETINE
     Dosage: 90 MILLIGRAM, QD (AT THE ONSET OF PREGNANCY)
     Route: 064
     Dates: start: 202411
  48. DULOXETINE [Suspect]
     Active Substance: DULOXETINE
     Dosage: 90 MILLIGRAM, QD (AT THE ONSET OF PREGNANCY)
     Route: 064
     Dates: start: 202411
  49. DULOXETINE [Suspect]
     Active Substance: DULOXETINE
     Dosage: 120 MILLIGRAM, QD (DOSAGE INCREASED TO 120 MG/D IN THE COURSE OF PREGNANCY )
     Dates: end: 202508
  50. DULOXETINE [Suspect]
     Active Substance: DULOXETINE
     Dosage: 120 MILLIGRAM, QD (DOSAGE INCREASED TO 120 MG/D IN THE COURSE OF PREGNANCY )
     Route: 064
     Dates: end: 202508
  51. DULOXETINE [Suspect]
     Active Substance: DULOXETINE
     Dosage: 120 MILLIGRAM, QD (DOSAGE INCREASED TO 120 MG/D IN THE COURSE OF PREGNANCY )
     Dates: end: 202508
  52. DULOXETINE [Suspect]
     Active Substance: DULOXETINE
     Dosage: 120 MILLIGRAM, QD (DOSAGE INCREASED TO 120 MG/D IN THE COURSE OF PREGNANCY )
     Dates: end: 202508
  53. DULOXETINE [Suspect]
     Active Substance: DULOXETINE
     Dosage: 120 MILLIGRAM, QD (DOSAGE INCREASED TO 120 MG/D IN THE COURSE OF PREGNANCY )
     Route: 064
     Dates: end: 202508
  54. DULOXETINE [Suspect]
     Active Substance: DULOXETINE
     Dosage: 120 MILLIGRAM, QD (DOSAGE INCREASED TO 120 MG/D IN THE COURSE OF PREGNANCY )
     Route: 064
     Dates: end: 202508
  55. DULOXETINE [Suspect]
     Active Substance: DULOXETINE
     Dosage: 120 MILLIGRAM, QD (DOSAGE INCREASED TO 120 MG/D IN THE COURSE OF PREGNANCY )
     Dates: end: 202508
  56. DULOXETINE [Suspect]
     Active Substance: DULOXETINE
     Dosage: 120 MILLIGRAM, QD (DOSAGE INCREASED TO 120 MG/D IN THE COURSE OF PREGNANCY )
     Route: 064
     Dates: end: 202508
  57. TAVOR (LORAZEPAM) [Suspect]
     Active Substance: LORAZEPAM
     Indication: Anxiety disorder
     Dosage: 2.5 MILLIGRAM, PRN (CONFLICTING REPORTS WHEN STARTED: STARTED THE LATEST FROM GW 5, POSSIBLY
  58. TAVOR (LORAZEPAM) [Suspect]
     Active Substance: LORAZEPAM
     Dosage: 2.5 MILLIGRAM, PRN (CONFLICTING REPORTS WHEN STARTED: STARTED THE LATEST FROM GW 5, POSSIBLY
  59. TAVOR (LORAZEPAM) [Suspect]
     Active Substance: LORAZEPAM
     Dosage: 2.5 MILLIGRAM, PRN (CONFLICTING REPORTS WHEN STARTED: STARTED THE LATEST FROM GW 5, POSSIBLY
     Route: 064
  60. TAVOR (LORAZEPAM) [Suspect]
     Active Substance: LORAZEPAM
     Dosage: 2.5 MILLIGRAM, PRN (CONFLICTING REPORTS WHEN STARTED: STARTED THE LATEST FROM GW 5, POSSIBLY
     Route: 064
  61. TAVOR (LORAZEPAM) [Suspect]
     Active Substance: LORAZEPAM
     Dosage: 2.5 MILLIGRAM, PRN (CONFLICTING REPORTS WHEN STARTED: STARTED THE LATEST FROM GW 5, POSSIBLY
  62. TAVOR (LORAZEPAM) [Suspect]
     Active Substance: LORAZEPAM
     Dosage: 2.5 MILLIGRAM, PRN (CONFLICTING REPORTS WHEN STARTED: STARTED THE LATEST FROM GW 5, POSSIBLY
  63. TAVOR (LORAZEPAM) [Suspect]
     Active Substance: LORAZEPAM
     Dosage: 2.5 MILLIGRAM, PRN (CONFLICTING REPORTS WHEN STARTED: STARTED THE LATEST FROM GW 5, POSSIBLY
     Route: 064
  64. TAVOR (LORAZEPAM) [Suspect]
     Active Substance: LORAZEPAM
     Dosage: 2.5 MILLIGRAM, PRN (CONFLICTING REPORTS WHEN STARTED: STARTED THE LATEST FROM GW 5, POSSIBLY
     Route: 064
  65. IVABRADINE [Concomitant]
     Active Substance: IVABRADINE
     Indication: Postural orthostatic tachycardia syndrome
     Dosage: 5 MILLIGRAM, QD
     Dates: start: 202411, end: 202502
  66. IVABRADINE [Concomitant]
     Active Substance: IVABRADINE
     Dosage: 5 MILLIGRAM, QD
     Dates: start: 202411, end: 202502
  67. IVABRADINE [Concomitant]
     Active Substance: IVABRADINE
     Dosage: 5 MILLIGRAM, QD
     Route: 064
     Dates: start: 202411, end: 202502
  68. IVABRADINE [Concomitant]
     Active Substance: IVABRADINE
     Dosage: 5 MILLIGRAM, QD
     Route: 064
     Dates: start: 202411, end: 202502
  69. IVABRADINE [Concomitant]
     Active Substance: IVABRADINE
     Dosage: 5 MILLIGRAM, QD
     Dates: start: 202411, end: 202502
  70. IVABRADINE [Concomitant]
     Active Substance: IVABRADINE
     Dosage: 5 MILLIGRAM, QD
     Dates: start: 202411, end: 202502
  71. IVABRADINE [Concomitant]
     Active Substance: IVABRADINE
     Dosage: 5 MILLIGRAM, QD
     Route: 064
     Dates: start: 202411, end: 202502
  72. IVABRADINE [Concomitant]
     Active Substance: IVABRADINE
     Dosage: 5 MILLIGRAM, QD
     Route: 064
     Dates: start: 202411, end: 202502

REACTIONS (2)
  - Microcephaly [Not Recovered/Not Resolved]
  - Foetal exposure during pregnancy [Unknown]

NARRATIVE: CASE EVENT DATE: 20250801
